FAERS Safety Report 6691591-9 (Version None)
Quarter: 2010Q2

REPORT INFORMATION
  Report Type: 
  Country: None (occurrence: None)
  Receive Date: 20100422
  Receipt Date: 20100412
  Transmission Date: 20101027
  Serious: Yes (Life-Threatening)
  Sender: FDA-Public Use
  Company Number: GB-BAXTER-2010BH009773

PATIENT
  Age: 4 Year
  Sex: Male
  Weight: 17 kg

DRUGS (3)
  1. SEVOFLURANE [Suspect]
     Indication: TOOTH EXTRACTION
     Route: 055
  2. SEVOFLURANE [Suspect]
     Indication: GENERAL ANAESTHESIA
     Route: 055
  3. PARACETAMOL [Suspect]
     Indication: DRUG USE FOR UNKNOWN INDICATION
     Route: 042

REACTIONS (4)
  - BRADYCARDIA [None]
  - CARDIAC ARREST [None]
  - ELECTROCARDIOGRAM QT PROLONGED [None]
  - NODAL ARRHYTHMIA [None]
